FAERS Safety Report 11681502 (Version 1)
Quarter: 2015Q4

REPORT INFORMATION
  Report Type: Spontaneous
  Country: GB (occurrence: GB)
  Receive Date: 20151029
  Receipt Date: 20151029
  Transmission Date: 20160304
  Serious: Yes (Hospitalization)
  Sender: FDA-Public Use
  Company Number: GB-AMGEN-GBRSP2015083120

PATIENT
  Age: 32 Year
  Sex: Female

DRUGS (4)
  1. EPIRUBICIN [Concomitant]
     Active Substance: EPIRUBICIN
     Dosage: UNK
  2. CYCLOPHOSPHAMIDE. [Concomitant]
     Active Substance: CYCLOPHOSPHAMIDE
     Dosage: UNK
  3. NEULASTA [Suspect]
     Active Substance: PEGFILGRASTIM
     Indication: PRODUCT USED FOR UNKNOWN INDICATION
     Dosage: UNK
     Route: 065
  4. 5-FU                               /00098801/ [Concomitant]
     Active Substance: FLUOROURACIL
     Dosage: UNK

REACTIONS (15)
  - Oropharyngeal pain [Not Recovered/Not Resolved]
  - Bone pain [Unknown]
  - Tonsillitis [Unknown]
  - Alopecia [Unknown]
  - Malaise [Not Recovered/Not Resolved]
  - Ear discomfort [Not Recovered/Not Resolved]
  - Constipation [Unknown]
  - Body temperature abnormal [Not Recovered/Not Resolved]
  - Myalgia [Unknown]
  - Nausea [Unknown]
  - Oral pain [Unknown]
  - Headache [Not Recovered/Not Resolved]
  - Cough [Not Recovered/Not Resolved]
  - Increased viscosity of upper respiratory secretion [Not Recovered/Not Resolved]
  - Fatigue [Unknown]
